FAERS Safety Report 23553950 (Version 1)
Quarter: 2024Q1

REPORT INFORMATION
  Report Type: Spontaneous
  Country: US (occurrence: US)
  Receive Date: 20240222
  Receipt Date: 20240222
  Transmission Date: 20240410
  Serious: Yes (Other)
  Sender: FDA-Public Use
  Company Number: US-BAYER-2024A026126

PATIENT
  Age: 31 Year
  Sex: Male
  Weight: 95.238 kg

DRUGS (1)
  1. KOVALTRY [Suspect]
     Active Substance: ANTIHEMOPHILIC FACTOR, HUMAN RECOMBINANT
     Indication: Factor VIII deficiency
     Dosage: 3 DOSES
     Route: 042
     Dates: start: 202010

REACTIONS (2)
  - Haemorrhage [None]
  - Weight decreased [None]
